FAERS Safety Report 7364062-4 (Version None)
Quarter: 2011Q1

REPORT INFORMATION
  Report Type: 
  Country: None (occurrence: None)
  Receive Date: 20110321
  Receipt Date: 20110314
  Transmission Date: 20110831
  Serious: Yes (Other)
  Sender: FDA-Public Use
  Company Number: US-PFIZER INC-2011056785

PATIENT

DRUGS (1)
  1. VANCOMYCIN HCL [Suspect]

REACTIONS (1)
  - PERITONITIS [None]
